FAERS Safety Report 16349948 (Version 1)
Quarter: 2019Q2

REPORT INFORMATION
  Report Type: Spontaneous
  Country: US (occurrence: US)
  Receive Date: 20190523
  Receipt Date: 20190523
  Transmission Date: 20190711
  Serious: Yes (Hospitalization)
  Sender: FDA-Public Use
  Company Number: US-BIOMARINAP-US-2019-123784

PATIENT
  Age: 39 Year
  Sex: Female
  Weight: 100 kg

DRUGS (3)
  1. PALYNZIQ [Suspect]
     Active Substance: PEGVALIASE-PQPZ
     Indication: PHENYLKETONURIA
     Dosage: 2.5 MILLIGRAM, QW
     Route: 058
     Dates: start: 20190508
  2. ZYRTEC [Concomitant]
     Active Substance: CETIRIZINE HYDROCHLORIDE
     Indication: PREMEDICATION
     Dosage: 10 MILLIGRAM
     Dates: start: 20190506
  3. ZANTAC [Concomitant]
     Active Substance: RANITIDINE HYDROCHLORIDE
     Indication: PREMEDICATION
     Dosage: UNK
     Dates: start: 20190506

REACTIONS (3)
  - Pyrexia [Recovered/Resolved]
  - Serum sickness [Recovered/Resolved]
  - Injection site reaction [Recovered/Resolved]

NARRATIVE: CASE EVENT DATE: 20190517
